FAERS Safety Report 4578570-2 (Version None)
Quarter: 2005Q1

REPORT INFORMATION
  Report Type: 
  Country: None (occurrence: None)
  Receive Date: 20050209
  Receipt Date: 20050209
  Transmission Date: 20050727
  Serious: Yes (Other)
  Sender: FDA-Public Use
  Company Number: None

PATIENT
  Age: 48 Year
  Sex: Female
  Weight: 70.3075 kg

DRUGS (1)
  1. LEVAQUIN [Suspect]
     Indication: INCREASED BRONCHIAL SECRETION
     Dosage: ORAL
     Route: 048
     Dates: start: 20030710, end: 20030710

REACTIONS (9)
  - COUGH [None]
  - DISORIENTATION [None]
  - DIZZINESS [None]
  - DYSPNOEA [None]
  - FAECAL INCONTINENCE [None]
  - FREQUENT BOWEL MOVEMENTS [None]
  - IMPAIRED DRIVING ABILITY [None]
  - PULMONARY CONGESTION [None]
  - SKIN DISCOLOURATION [None]
